FAERS Safety Report 4819772-7 (Version None)
Quarter: 2005Q4

REPORT INFORMATION
  Report Type: 
  Country: None (occurrence: None)
  Receive Date: 20051102
  Receipt Date: 20051021
  Transmission Date: 20060501
  Serious: Yes (Other)
  Sender: FDA-Public Use
  Company Number: 2005123422

PATIENT
  Age: 21 Year
  Sex: Male
  Weight: 117.9352 kg

DRUGS (3)
  1. CELEBREX [Suspect]
     Indication: LIMB OPERATION
     Dosage: 200 MG (200 MG, 1 IN 1 D), ORAL
     Route: 048
     Dates: start: 20000101, end: 20040101
  2. BEXTRA [Suspect]
     Indication: ILL-DEFINED DISORDER
  3. VIOXX [Suspect]
     Indication: ILL-DEFINED DISORDER

REACTIONS (10)
  - ANXIETY [None]
  - GASTRIC DISORDER [None]
  - INFLAMMATION [None]
  - LIMB OPERATION [None]
  - MALAISE [None]
  - ORAL INTAKE REDUCED [None]
  - SCAR [None]
  - STOMACH DISCOMFORT [None]
  - VOMITING [None]
  - WEIGHT DECREASED [None]
